FAERS Safety Report 4864949-8 (Version None)
Quarter: 2005Q4

REPORT INFORMATION
  Report Type: 
  Country: None (occurrence: None)
  Receive Date: 20051219
  Receipt Date: 20051202
  Transmission Date: 20060501
  Serious: Yes (Life-Threatening, Hospitalization)
  Sender: FDA-Public Use
  Company Number: 219057

PATIENT
  Age: 62 Year
  Sex: Male
  Weight: 62 kg

DRUGS (10)
  1. AVASTIN [Suspect]
     Indication: GASTROOESOPHAGEAL CANCER
     Dosage: 5 MG/KG, Q2W, INTRAVENOUS
     Route: 042
     Dates: start: 20050427, end: 20050914
  2. DOCETAXEL (DOCETAXEL) [Suspect]
     Indication: GASTROOESOPHAGEAL CANCER
     Dosage: 35 MG/M2, 1/WEEK, INTRAVENOUS
     Route: 042
     Dates: start: 20050427, end: 20050921
  3. DECADRON SRC [Concomitant]
  4. COMPAZINE [Concomitant]
  5. LIPITOR [Concomitant]
  6. LISINOPRIL [Concomitant]
  7. MAGNESIUM OXIDE (MAGNESIUM OXIDE) [Concomitant]
  8. OXANDRIN [Concomitant]
  9. PREDNISONE [Concomitant]
  10. ZANTAC [Concomitant]

REACTIONS (11)
  - CARDIAC FAILURE CONGESTIVE [None]
  - EPISTAXIS [None]
  - GASTROINTESTINAL ULCER [None]
  - HAEMATOCRIT DECREASED [None]
  - HAEMOGLOBIN DECREASED [None]
  - HAEMOPTYSIS [None]
  - HEART RATE INCREASED [None]
  - PLEURAL FIBROSIS [None]
  - PNEUMONIA ASPIRATION [None]
  - THROMBOCYTOPENIA [None]
  - THROMBOSIS [None]
